FAERS Safety Report 15611142 (Version 1)
Quarter: 2018Q4

REPORT INFORMATION
  Report Type: Spontaneous
  Country: US (occurrence: US)
  Receive Date: 20181113
  Receipt Date: 20181113
  Transmission Date: 20190205
  Serious: No
  Sender: FDA-Public Use
  Company Number: US-ROCHE-2156023

PATIENT
  Sex: Female
  Weight: 76.27 kg

DRUGS (1)
  1. HERCEPTIN [Suspect]
     Active Substance: TRASTUZUMAB
     Indication: BREAST CANCER
     Dosage: ONGOING:NO
     Route: 065
     Dates: start: 20170515, end: 20180605

REACTIONS (1)
  - Pregnancy [Unknown]
